FAERS Safety Report 5670920-9 (Version None)
Quarter: 2008Q1

REPORT INFORMATION
  Report Type: 
  Country: None (occurrence: None)
  Receive Date: 20080318
  Receipt Date: 20080313
  Transmission Date: 20080703
  Serious: Yes (Other)
  Sender: FDA-Public Use
  Company Number: B0512068A

PATIENT
  Age: 29 Year
  Sex: Male

DRUGS (4)
  1. KIVEXA [Suspect]
     Indication: HIV INFECTION
     Dates: start: 20080212
  2. ATAZANAVIR SULFATE [Concomitant]
  3. RITONAVIR [Concomitant]
  4. SEPTRIN [Concomitant]

REACTIONS (3)
  - BLOOD AMYLASE INCREASED [None]
  - NEUROPATHY PERIPHERAL [None]
  - SENSORY LOSS [None]
